FAERS Safety Report 8290390-4 (Version None)
Quarter: 2012Q2

REPORT INFORMATION
  Report Type: 
  Country: None (occurrence: None)
  Receive Date: 20120412
  Receipt Date: 20120412
  Transmission Date: 20120825
  Serious: Yes (Hospitalization)
  Sender: FDA-Public Use
  Company Number: None

PATIENT
  Sex: Female
  Weight: 176.3 kg

DRUGS (10)
  1. AMBIEN [Concomitant]
  2. CITALOPRAM HYDROBROMIDE [Concomitant]
  3. PRAVACHOL [Concomitant]
  4. PEPCID [Concomitant]
  5. REQUIP [Concomitant]
  6. CARBIDOPA AND LEVODOPA [Suspect]
     Indication: PARKINSON'S DISEASE
     Dosage: (435 MG QID ORAL), (95 MG QID ORAL)
     Route: 048
     Dates: start: 20120301, end: 20120302
  7. CARBIDOPA AND LEVODOPA [Suspect]
     Indication: PARKINSON'S DISEASE
     Dosage: (435 MG QID ORAL), (95 MG QID ORAL)
     Route: 048
     Dates: start: 20111222, end: 20120315
  8. SYNTHROID [Concomitant]
  9. PRILOSEC [Concomitant]
  10. VITAMIN D [Concomitant]

REACTIONS (14)
  - DEHYDRATION [None]
  - PANIC ATTACK [None]
  - URINARY TRACT INFECTION [None]
  - HEART RATE INCREASED [None]
  - BLOOD SODIUM DECREASED [None]
  - DYSKINESIA [None]
  - DYSPNOEA [None]
  - TREMOR [None]
  - CONFUSIONAL STATE [None]
  - AKATHISIA [None]
  - RENAL FAILURE ACUTE [None]
  - BLOOD POTASSIUM DECREASED [None]
  - BODY TEMPERATURE DECREASED [None]
  - ANXIETY [None]
